FAERS Safety Report 6978350-4 (Version None)
Quarter: 2010Q3

REPORT INFORMATION
  Report Type: 
  Country: None (occurrence: None)
  Receive Date: 20100913
  Receipt Date: 20100830
  Transmission Date: 20110219
  Serious: Yes (Hospitalization, Other)
  Sender: FDA-Public Use
  Company Number: PHHY2010JP34027

PATIENT
  Sex: Female
  Weight: 47 kg

DRUGS (6)
  1. CGS 20267 T30748+TAB [Suspect]
     Indication: BREAST CANCER
     Dosage: 2.5 MG
     Route: 048
     Dates: start: 20070627, end: 20071120
  2. ZOMETA [Suspect]
     Indication: BREAST CANCER
     Dosage: UNK
     Route: 042
     Dates: start: 20070314, end: 20070607
  3. ZOMETA [Suspect]
     Dosage: UNK
     Route: 042
     Dates: start: 20070704
  4. NOLVADEX [Concomitant]
     Dosage: UNK
     Route: 048
     Dates: start: 20070123, end: 20070620
  5. FAMOTIDINE [Concomitant]
     Indication: REFLUX OESOPHAGITIS
     Dosage: 10 MG
     Route: 048
     Dates: start: 20041006
  6. RADIATION THERAPY [Concomitant]
     Dosage: UNK
     Dates: end: 20070606

REACTIONS (7)
  - CONSTIPATION [None]
  - DRUG INEFFECTIVE [None]
  - FEMUR FRACTURE [None]
  - MALIGNANT NEOPLASM PROGRESSION [None]
  - NAUSEA [None]
  - PAIN [None]
  - SURGERY [None]
